FAERS Safety Report 12884052 (Version 5)
Quarter: 2019Q3

REPORT INFORMATION
  Report Type: Spontaneous
  Country: US (occurrence: US)
  Receive Date: 20161026
  Receipt Date: 20190911
  Transmission Date: 20191004
  Serious: Yes (Hospitalization)
  Sender: FDA-Public Use
  Company Number: US-PFIZER INC-2016497488

PATIENT
  Age: 67 Year
  Sex: Female
  Weight: 78.5 kg

DRUGS (2)
  1. SKELAXIN [Suspect]
     Active Substance: METAXALONE
     Indication: MUSCLE SPASMS
     Dosage: 800 MG, 2X/DAY
     Route: 048
     Dates: start: 2007
  2. SKELAXIN [Suspect]
     Active Substance: METAXALONE
     Indication: PAIN
     Dosage: 800 MG, 2X/DAY
     Dates: start: 201611

REACTIONS (1)
  - No adverse event [Recovered/Resolved]
